FAERS Safety Report 4932447-9 (Version None)
Quarter: 2006Q1

REPORT INFORMATION
  Report Type: 
  Country: None (occurrence: None)
  Receive Date: 20060303
  Receipt Date: 20050628
  Transmission Date: 20060701
  Serious: Yes (Hospitalization, Disabling, Other)
  Sender: FDA-Public Use
  Company Number: US-MERCK-0506USA04315

PATIENT
  Age: 60 Year
  Sex: Male
  Weight: 89 kg

DRUGS (4)
  1. VIOXX [Suspect]
     Indication: MONARTHRITIS
     Route: 048
     Dates: start: 20010201, end: 20040901
  2. VIOXX [Suspect]
     Route: 048
     Dates: start: 20010201, end: 20040901
  3. VIOXX [Suspect]
     Indication: ARTHRALGIA
     Route: 048
     Dates: start: 20010201, end: 20040901
  4. VIOXX [Suspect]
     Route: 048
     Dates: start: 20010201, end: 20040901

REACTIONS (11)
  - ADVERSE EVENT [None]
  - ANGINA PECTORIS [None]
  - ARTHROPATHY [None]
  - CARDIAC VALVE DISEASE [None]
  - CORONARY ARTERY OCCLUSION [None]
  - COUGH [None]
  - KNEE ARTHROPLASTY [None]
  - LOSS OF CONSCIOUSNESS [None]
  - MUSCLE SPASMS [None]
  - MYOCARDIAL INFARCTION [None]
  - ROAD TRAFFIC ACCIDENT [None]
